FAERS Safety Report 6058110-1 (Version None)
Quarter: 2009Q1

REPORT INFORMATION
  Report Type: 
  Country: None (occurrence: None)
  Receive Date: 20090130
  Receipt Date: 20090116
  Transmission Date: 20090719
  Serious: Yes (Death)
  Sender: FDA-Public Use
  Company Number: US-RANBAXY-2009RR-21353

PATIENT
  Age: 24 Year
  Sex: Male

DRUGS (5)
  1. CLONAZEPAM [Suspect]
     Indication: DRUG ABUSE
  2. DOXEPIN HCL [Suspect]
     Indication: DRUG ABUSE
  3. CEFADROXIL [Suspect]
     Indication: DRUG ABUSE
  4. BENZODIAZEPINE [Suspect]
     Indication: DRUG ABUSE
  5. HEROIN [Suspect]
     Indication: DRUG ABUSE

REACTIONS (1)
  - DRUG ABUSE [None]
